FAERS Safety Report 9887428 (Version 4)
Quarter: 2015Q1

REPORT INFORMATION
  Report Type: Spontaneous
  Country: JP (occurrence: JP)
  Receive Date: 20140211
  Receipt Date: 20150305
  Transmission Date: 20150721
  Serious: Yes (Death, Life-Threatening, Other)
  Sender: FDA-Public Use
  Company Number: JP-ALEXION PHARMACEUTICALS INC.-A201400394

PATIENT

DRUGS (2)
  1. SOLIRIS [Suspect]
     Active Substance: ECULIZUMAB
     Dosage: 300 MG, TIW
     Route: 042
     Dates: start: 20131225, end: 20140116
  2. SOLIRIS [Suspect]
     Active Substance: ECULIZUMAB
     Indication: HAEMOLYTIC URAEMIC SYNDROME
     Dosage: 300 MG, QW
     Route: 042
     Dates: start: 20131218, end: 20131218

REACTIONS (7)
  - Pneumonia respiratory syncytial viral [Not Recovered/Not Resolved]
  - Pulmonary oedema [Not Recovered/Not Resolved]
  - Gastric mucosal lesion [Not Recovered/Not Resolved]
  - Pulmonary haemorrhage [Fatal]
  - Respiratory disorder [Unknown]
  - Secondary hypertension [Not Recovered/Not Resolved]
  - Pneumonia parainfluenzae viral [Not Recovered/Not Resolved]

NARRATIVE: CASE EVENT DATE: 20131222
